FAERS Safety Report 6233502-6 (Version None)
Quarter: 2009Q2

REPORT INFORMATION
  Report Type: 
  Country: None (occurrence: None)
  Receive Date: 20090617
  Receipt Date: 20090608
  Transmission Date: 20091009
  Serious: Yes (Death, Hospitalization)
  Sender: FDA-Public Use
  Company Number: FR-ABBOTT-07P-056-0420224-00

PATIENT
  Sex: Female
  Weight: 53 kg

DRUGS (13)
  1. HUMIRA [Suspect]
     Indication: RHEUMATOID ARTHRITIS
     Route: 058
     Dates: start: 20040526, end: 20061220
  2. COMMERCIAL HUMIRA [Concomitant]
     Indication: RHEUMATOID ARTHRITIS
     Route: 058
     Dates: start: 20031020
  3. SECTRAL [Concomitant]
     Indication: CARDIAC DISORDER
     Dates: end: 20061224
  4. FOSAMAX [Concomitant]
     Indication: OSTEOPOROSIS
     Dates: end: 20061224
  5. RELEVENE [Concomitant]
     Indication: DRUG USE FOR UNKNOWN INDICATION
     Dates: end: 20061224
  6. CORDARONE [Concomitant]
     Indication: CARDIAC DISORDER
     Dates: end: 20061224
  7. HYPERIUM [Concomitant]
     Indication: CARDIAC DISORDER
     Dates: end: 20061224
  8. METHOTREXATE [Concomitant]
     Indication: PALINDROMIC RHEUMATISM
     Dosage: 6 TABLETS
  9. METHOTREXATE [Concomitant]
     Dates: end: 20061224
  10. SPECIAFOLDINE [Concomitant]
     Indication: PALINDROMIC RHEUMATISM
     Dates: end: 20061224
  11. NEXIUM [Concomitant]
     Indication: GASTRITIS PROPHYLAXIS
     Dates: end: 20061224
  12. COLCHIMAX [Concomitant]
     Indication: PALINDROMIC RHEUMATISM
     Dates: end: 20061224
  13. CEBUTID [Concomitant]
     Indication: PALINDROMIC RHEUMATISM
     Dates: end: 20061224

REACTIONS (2)
  - CARDIAC FAILURE CONGESTIVE [None]
  - LUNG DISORDER [None]
